FAERS Safety Report 11056295 (Version 1)
Quarter: 2015Q2

REPORT INFORMATION
  Report Type: Spontaneous
  Country: AR (occurrence: AR)
  Receive Date: 20150422
  Receipt Date: 20150422
  Transmission Date: 20150821
  Serious: Yes (Death, Hospitalization, Other)
  Sender: FDA-Public Use
  Company Number: AR-AMGEN-ARGSP2015038796

PATIENT
  Age: 66 Year
  Sex: Female
  Weight: 65 kg

DRUGS (2)
  1. KYPROLIS [Suspect]
     Active Substance: CARFILZOMIB
     Indication: DISEASE PROGRESSION
     Dosage: 20 MG/M2, 2 TIMES/WK
     Route: 042
     Dates: start: 20150311, end: 20150325
  2. DEXAMETHASONE. [Concomitant]
     Active Substance: DEXAMETHASONE
     Indication: PLASMA CELL MYELOMA
     Dosage: 2 MG, UNK
     Route: 042
     Dates: start: 20150311, end: 20150325

REACTIONS (4)
  - Disease progression [Fatal]
  - Orthopnoea [Recovered/Resolved]
  - Dyspnoea [Recovered/Resolved]
  - Myocarditis [Recovered/Resolved]

NARRATIVE: CASE EVENT DATE: 20150312
